FAERS Safety Report 4354667-7 (Version None)
Quarter: 2004Q2

REPORT INFORMATION
  Report Type: 
  Country: None (occurrence: None)
  Receive Date: 20040503
  Receipt Date: 20040422
  Transmission Date: 20050107
  Serious: Yes (Other)
  Sender: FDA-Public Use
  Company Number: HQWYE578623APR04

PATIENT
  Age: 35 Year
  Sex: Female

DRUGS (4)
  1. EFFEXOR XR [Suspect]
     Indication: DEPRESSION
     Dosage: UNSURE 75 - 150 MG, DAILY; ORAL
     Route: 048
     Dates: end: 20031101
  2. ETHANOL (ETHANOL, [Suspect]
     Indication: DRUG USE FOR UNKNOWN INDICATION
     Dosage: DRANK 2 BEERS^ ; ORAL
     Route: 048
     Dates: start: 20031101, end: 20031101
  3. TRILEPTAL [Concomitant]
  4. LAMICTAL [Concomitant]

REACTIONS (2)
  - ALCOHOL INTERACTION [None]
  - CONVULSION [None]
